FAERS Safety Report 14555801 (Version 7)
Quarter: 2018Q4

REPORT INFORMATION
  Report Type: Report from Study
  Country: JP (occurrence: JP)
  Receive Date: 20180221
  Receipt Date: 20181125
  Transmission Date: 20190204
  Serious: Yes (Death, Hospitalization, Other)
  Sender: FDA-Public Use
  Company Number: JP-BRISTOL-MYERS SQUIBB COMPANY-BMS-2017-048193

PATIENT
  Age: 54 Year
  Sex: Female
  Weight: 49 kg

DRUGS (2)
  1. IPILIMUMAB [Suspect]
     Active Substance: IPILIMUMAB
     Indication: PRODUCT USED FOR UNKNOWN INDICATION
     Dosage: 3 MG/KG, Q3WK
     Route: 041
     Dates: start: 20161212, end: 20161212
  2. IPILIMUMAB [Suspect]
     Active Substance: IPILIMUMAB
     Indication: MALIGNANT MELANOMA STAGE III
     Dosage: 3 MG/KG, Q3WK
     Route: 041
     Dates: start: 20161121, end: 20161121

REACTIONS (8)
  - Pyrexia [Unknown]
  - Liver disorder [Recovering/Resolving]
  - Enterocolitis [Recovering/Resolving]
  - Hepatic function abnormal [Recovered/Resolved]
  - Colitis [Unknown]
  - Hypothyroidism [Not Recovered/Not Resolved]
  - Malaise [Unknown]
  - Malignant neoplasm progression [Fatal]

NARRATIVE: CASE EVENT DATE: 20161224
